FAERS Safety Report 4783738-6 (Version None)
Quarter: 2005Q3

REPORT INFORMATION
  Report Type: 
  Country: None (occurrence: None)
  Receive Date: 20050928
  Receipt Date: 20050909
  Transmission Date: 20060218
  Serious: Yes (Other)
  Sender: FDA-Public Use
  Company Number: PAR_0196_2005

PATIENT
  Age: 82 Year
  Sex: Female

DRUGS (6)
  1. LISINOPRIL [Suspect]
     Dosage: 20 MG QD
  2. LISINOPRIL [Suspect]
     Dosage: 10 MG QD
  3. ASPIRIN [Concomitant]
  4. COAMILOFRUSE [Concomitant]
  5. BISOPROLOL [Concomitant]
  6. FLUDROCORTISONE [Concomitant]

REACTIONS (9)
  - ABDOMINAL DISTENSION [None]
  - ERUCTATION [None]
  - FALL [None]
  - HEADACHE [None]
  - HYPOTENSION [None]
  - INJURY [None]
  - LOSS OF CONSCIOUSNESS [None]
  - RETCHING [None]
  - VISION BLURRED [None]
